FAERS Safety Report 18221678 (Version 3)
Quarter: 2024Q4

REPORT INFORMATION
  Report Type: Report from Study
  Country: US (occurrence: US)
  Receive Date: 20200902
  Receipt Date: 20241129
  Transmission Date: 20250115
  Serious: Yes (Other)
  Sender: DECIPHERA PHARMACEUTICALS
  Company Number: US-DECIPHERA PHARMACEUTICALS LLC-2020-US-000002

PATIENT
  Age: 50 Year
  Sex: Male

DRUGS (2)
  1. QINLOCK [Suspect]
     Active Substance: RIPRETINIB
     Indication: Gastrointestinal stromal tumour
     Dosage: 150 MILLIGRAM, QD
     Route: 048
  2. QINLOCK [Suspect]
     Active Substance: RIPRETINIB
     Dosage: 150 MILLIGRAM, QD
     Route: 048
     Dates: start: 20200527, end: 20200902

REACTIONS (13)
  - Hallucination [Unknown]
  - Feeling abnormal [Unknown]
  - Localised infection [Unknown]
  - Food poisoning [Unknown]
  - Insomnia [Unknown]
  - Pyrexia [Unknown]
  - Decreased appetite [Unknown]
  - Vomiting [Unknown]
  - Diarrhoea [Unknown]
  - Weight decreased [Unknown]
  - Nausea [Unknown]
  - Acne [Unknown]
  - Urinary tract infection [Not Recovered/Not Resolved]
